FAERS Safety Report 5607724-9 (Version None)
Quarter: 2008Q1

REPORT INFORMATION
  Report Type: 
  Country: None (occurrence: None)
  Receive Date: 20080130
  Receipt Date: 20080116
  Transmission Date: 20080703
  Serious: Yes (Life-Threatening, Hospitalization)
  Sender: FDA-Public Use
  Company Number: DE-AMGEN-US261304

PATIENT
  Sex: Male
  Weight: 63 kg

DRUGS (3)
  1. ENBREL [Suspect]
     Indication: POLYARTHRITIS
     Dosage: 50 MG WEEKLY
     Route: 058
     Dates: start: 20011011, end: 20071001
  2. CORTISONE [Concomitant]
     Indication: POLYARTHRITIS
     Dosage: UNKNOWN
     Route: 065
  3. LANTAREL [Concomitant]
     Indication: POLYARTHRITIS
     Dosage: UNKNOWN
     Route: 065

REACTIONS (4)
  - BACTERIAL SEPSIS [None]
  - MULTI-ORGAN FAILURE [None]
  - PNEUMONIA [None]
  - SEPTIC SHOCK [None]
